FAERS Safety Report 10271070 (Version 1)
Quarter: 2014Q3

REPORT INFORMATION
  Report Type: Report from Study
  Country: CA (occurrence: CA)
  Receive Date: 20140701
  Receipt Date: 20140701
  Transmission Date: 20150326
  Serious: Yes (Other)
  Sender: FDA-Public Use
  Company Number: CA-BRISTOL-MYERS SQUIBB COMPANY-21145883

PATIENT
  Sex: Female

DRUGS (11)
  1. LIPITOR [Concomitant]
     Active Substance: ATORVASTATIN CALCIUM
  2. ABATACEPT [Suspect]
     Active Substance: ABATACEPT
     Indication: RHEUMATOID ARTHRITIS
     Dosage: 750 MG, Q4WK
     Route: 042
     Dates: start: 20091218
  3. ACTONEL [Concomitant]
     Active Substance: RISEDRONATE SODIUM
  4. CELEBREX [Concomitant]
     Active Substance: CELECOXIB
  5. CALCIUM [Concomitant]
     Active Substance: CALCIUM
  6. AVAPRO [Concomitant]
     Active Substance: IRBESARTAN
  7. SULFASALAZINE. [Concomitant]
     Active Substance: SULFASALAZINE
  8. ASAPHEN [Concomitant]
     Active Substance: ASPIRIN
  9. METOPROLOL [Concomitant]
     Active Substance: METOPROLOL
  10. OMEPRAZOL E [Concomitant]
     Active Substance: OMEPRAZOLE
  11. LYRICA [Concomitant]
     Active Substance: PREGABALIN

REACTIONS (1)
  - Cataract [Unknown]
